FAERS Safety Report 17324481 (Version 2)
Quarter: 2020Q1

REPORT INFORMATION
  Report Type: Spontaneous
  Country: US (occurrence: US)
  Receive Date: 20200127
  Receipt Date: 20200221
  Transmission Date: 20200409
  Serious: No
  Sender: FDA-Public Use
  Company Number: US-ASTRAZENECA-2020SE06588

PATIENT
  Age: 46 Year
  Sex: Female

DRUGS (1)
  1. BYDUREON BCISE [Suspect]
     Active Substance: EXENATIDE
     Route: 065

REACTIONS (5)
  - Incorrect dose administered by device [Unknown]
  - Device leakage [Unknown]
  - Injection site haemorrhage [Unknown]
  - Drug delivery system malfunction [Unknown]
  - Injection site pain [Unknown]
